FAERS Safety Report 9981834 (Version 1)
Quarter: 2014Q1

REPORT INFORMATION
  Report Type: Spontaneous
  Country: US (occurrence: None)
  Receive Date: 20140306
  Receipt Date: 20140306
  Transmission Date: 20141002
  Serious: Yes (Hospitalization)
  Sender: FDA-Public Use
  Company Number: None

PATIENT
  Age: 69 Year
  Sex: Male
  Weight: 86.4 kg

DRUGS (1)
  1. WARFARIN [Suspect]
     Dates: start: 20031125

REACTIONS (4)
  - Asthenia [None]
  - Melaena [None]
  - Epistaxis [None]
  - International normalised ratio increased [None]
